FAERS Safety Report 13639930 (Version 1)
Quarter: 2017Q2

REPORT INFORMATION
  Report Type: Spontaneous
  Country: US (occurrence: US)
  Receive Date: 20170609
  Receipt Date: 20170609
  Transmission Date: 20170830
  Serious: No
  Sender: FDA-Public Use
  Company Number: US-ROCHE-779461

PATIENT
  Sex: Female

DRUGS (5)
  1. KLONOPIN [Suspect]
     Active Substance: CLONAZEPAM
     Route: 048
  2. KLONOPIN [Suspect]
     Active Substance: CLONAZEPAM
     Route: 048
  3. KLONOPIN [Suspect]
     Active Substance: CLONAZEPAM
     Indication: ANXIETY
     Dosage: FORM: PILLS
     Route: 048
  4. KLONOPIN [Suspect]
     Active Substance: CLONAZEPAM
     Route: 048
  5. KLONOPIN [Suspect]
     Active Substance: CLONAZEPAM
     Route: 048

REACTIONS (4)
  - Anxiety [Unknown]
  - Mental impairment [Unknown]
  - Tremor [Unknown]
  - Drug use disorder [Unknown]
